FAERS Safety Report 16650571 (Version 3)
Quarter: 2019Q4

REPORT INFORMATION
  Report Type: Spontaneous
  Country: DE (occurrence: DE)
  Receive Date: 20190731
  Receipt Date: 20191210
  Transmission Date: 20200122
  Serious: Yes (Death, Hospitalization)
  Sender: FDA-Public Use
  Company Number: PHHY2019DE176478

PATIENT
  Age: 81 Year
  Sex: Female
  Weight: 60 kg

DRUGS (6)
  1. METFORMIN [Suspect]
     Active Substance: METFORMIN HYDROCHLORIDE
     Indication: TYPE 2 DIABETES MELLITUS
     Dosage: 2550 MG, QD (DAILY DOSE: 2550 MG MILLGRAM(S) EVERY DAYS 3 SEPARATED DOSES
     Route: 065
     Dates: start: 201307, end: 20190610
  2. BISOPROLOL [Concomitant]
     Active Substance: BISOPROLOL
     Indication: ATRIAL FIBRILLATION
     Dosage: 5 MG, QD (DAILY DOSE: 5 MG MILLGRAM(S) EVERY DAYS
     Route: 065
     Dates: start: 201307, end: 20190612
  3. PHENPROCOUMON [Concomitant]
     Active Substance: PHENPROCOUMON
     Indication: ATRIAL FIBRILLATION
     Dosage: UNK (ACCORDING TO INR)
     Route: 065
     Dates: start: 201307
  4. MARCUMAR [Suspect]
     Active Substance: PHENPROCOUMON
     Indication: PRODUCT USED FOR UNKNOWN INDICATION
     Dosage: UNK
     Route: 065
  5. RAMIPRIL HCT [Concomitant]
     Active Substance: HYDROCHLOROTHIAZIDE\RAMIPRIL
     Indication: HYPERTENSION
     Dosage: 1 DF, QD (DAILY DOSE: 1 DF DOSAGE FORM EVERY DAYS
     Route: 065
     Dates: start: 201307, end: 20190612
  6. AMLODIPIN [Concomitant]
     Active Substance: AMLODIPINE BESYLATE
     Indication: HYPERTENSION
     Dosage: 10 MG, QD (DAILY DOSE: 10 MG MILLGRAM(S) EVERY DAYS 2 SEPARATED DOSES)
     Route: 065
     Dates: start: 201307, end: 20190612

REACTIONS (11)
  - Cardiac failure [Fatal]
  - Respiratory failure [Fatal]
  - Lactic acidosis [Fatal]
  - Overdose [Fatal]
  - Acute kidney injury [Fatal]
  - Pleural effusion [Fatal]
  - Hepatitis [Fatal]
  - Disturbance in attention [Fatal]
  - Injury [Fatal]
  - Cardiorenal syndrome [Fatal]
  - Ascites [Fatal]

NARRATIVE: CASE EVENT DATE: 20190610
